FAERS Safety Report 9861659 (Version 2)
Quarter: 2014Q1

REPORT INFORMATION
  Report Type: Spontaneous
  Country: CA (occurrence: CA)
  Receive Date: 20140203
  Receipt Date: 20140203
  Transmission Date: 20141002
  Serious: Yes (Hospitalization, Other)
  Sender: FDA-Public Use
  Company Number: CA-AMGEN-CANSP2013076382

PATIENT
  Age: 68 Year
  Sex: Female

DRUGS (4)
  1. OXYBUTYNIN [Concomitant]
     Dosage: UNK
  2. CALCIUM [Concomitant]
     Dosage: UNK
  3. ENBREL [Suspect]
     Indication: PSORIATIC ARTHROPATHY
     Dosage: 50 MG, UNK
     Route: 065
     Dates: start: 20130223
  4. VITAMIN D                         /00107901/ [Concomitant]
     Dosage: UNK

REACTIONS (3)
  - Hysterectomy [Recovered/Resolved]
  - Abdominal mass [Not Recovered/Not Resolved]
  - Injection site pain [Not Recovered/Not Resolved]
